FAERS Safety Report 21173703 (Version 1)
Quarter: 2022Q3

REPORT INFORMATION
  Report Type: Spontaneous
  Country: US (occurrence: US)
  Receive Date: 20220804
  Receipt Date: 20220804
  Transmission Date: 20221026
  Serious: No
  Sender: FDA-Public Use
  Company Number: US-PERRIGO-21US029952

PATIENT
  Sex: Female
  Weight: 48.073 kg

DRUGS (6)
  1. LORATADINE [Suspect]
     Active Substance: LORATADINE
     Indication: Seasonal allergy
     Dosage: 10 MG, SINGLE
     Route: 048
     Dates: start: 2011, end: 2011
  2. LORATADINE [Suspect]
     Active Substance: LORATADINE
     Indication: Middle ear effusion
     Dosage: 10 MG, SINGLE
     Route: 048
     Dates: start: 20211020, end: 20211020
  3. PROLIA [Concomitant]
     Active Substance: DENOSUMAB
     Indication: Osteoporosis
     Dosage: UNKNOWN, TWICE YEARLY
     Route: 065
  4. MELOXICAM [Concomitant]
     Active Substance: MELOXICAM
     Indication: Pain
     Dosage: PRN
     Route: 065
  5. BACLOFEN [Concomitant]
     Active Substance: BACLOFEN
     Indication: Temporomandibular joint syndrome
     Dosage: PRN, QHS
     Route: 065
  6. BACLOFEN [Concomitant]
     Active Substance: BACLOFEN
     Indication: Muscle spasms

REACTIONS (5)
  - Blood pressure increased [Recovered/Resolved]
  - Psychomotor hyperactivity [Recovered/Resolved]
  - Insomnia [Recovered/Resolved]
  - Heart rate increased [Recovered/Resolved]
  - Off label use [Recovered/Resolved]

NARRATIVE: CASE EVENT DATE: 20110101
